FAERS Safety Report 9227114 (Version 1)
Quarter: 2013Q2

REPORT INFORMATION
  Report Type: Spontaneous
  Country: GB (occurrence: None)
  Receive Date: 20130410
  Receipt Date: 20130410
  Transmission Date: 20140414
  Serious: Yes (Other)
  Sender: FDA-Public Use
  Company Number: AUR-APL-2013-02743

PATIENT
  Age: 40 Year
  Sex: Female
  Weight: 67.58 kg

DRUGS (1)
  1. CITALOPRAM(CITALOPRAM) [Suspect]
     Indication: DEPRESSION
     Dosage: ORAL
     Route: 048

REACTIONS (4)
  - Amnesia [None]
  - Disturbance in attention [None]
  - Feeling abnormal [None]
  - Withdrawal syndrome [None]
